FAERS Safety Report 22296268 (Version 1)
Quarter: 2023Q2

REPORT INFORMATION
  Report Type: Spontaneous
  Country: US (occurrence: US)
  Receive Date: 20230508
  Receipt Date: 20230508
  Transmission Date: 20230721
  Serious: Yes (Other)
  Sender: FDA-Public Use
  Company Number: US-EVOFEM BIOSCIENCES, INC.-2023-EVO-US000035

PATIENT

DRUGS (1)
  1. PHEXXI [Suspect]
     Active Substance: CITRIC ACID MONOHYDRATE\LACTIC ACID, L-\POTASSIUM BITARTRATE
     Indication: Contraception
     Dosage: 2 UNK
     Route: 067

REACTIONS (5)
  - Nephritis [Unknown]
  - Back pain [Unknown]
  - Abdominal pain lower [Unknown]
  - Bladder dilatation [Unknown]
  - Weight decreased [Unknown]
